FAERS Safety Report 4703045-7 (Version None)
Quarter: 2005Q2

REPORT INFORMATION
  Report Type: 
  Country: None (occurrence: None)
  Receive Date: 20050628
  Receipt Date: 20050628
  Transmission Date: 20051028
  Serious: Yes (Life-Threatening, Hospitalization)
  Sender: FDA-Public Use
  Company Number: None

PATIENT
  Age: 49 Year
  Sex: Male
  Weight: 117.9352 kg

DRUGS (1)
  1. RIBAVIRIN [Suspect]
     Indication: HEPATITIS C

REACTIONS (2)
  - DYSPNOEA [None]
  - PULMONARY EMBOLISM [None]
